FAERS Safety Report 6309950-2 (Version None)
Quarter: 2009Q3

REPORT INFORMATION
  Report Type: 
  Country: None (occurrence: None)
  Receive Date: 20090814
  Receipt Date: 20090806
  Transmission Date: 20100115
  Serious: Yes (Life-Threatening)
  Sender: FDA-Public Use
  Company Number: B0588612A

PATIENT
  Sex: Male
  Weight: 95 kg

DRUGS (2)
  1. AUGMENTIN '125' [Suspect]
     Indication: PROPHYLAXIS
     Dates: start: 20090709, end: 20090709
  2. CIPROFLOXACIN HCL [Concomitant]
     Dosage: 500MG PER DAY
     Dates: start: 20090708, end: 20090708

REACTIONS (2)
  - BRADYCARDIA [None]
  - RASH [None]
